FAERS Safety Report 17670407 (Version 1)
Quarter: 2020Q2

REPORT INFORMATION
  Report Type: Spontaneous
  Country: DE (occurrence: DE)
  Receive Date: 20200415
  Receipt Date: 20200415
  Transmission Date: 20200713
  Serious: Yes (Hospitalization)
  Sender: FDA-Public Use
  Company Number: DE-TEVA-2020-DE-1222775

PATIENT
  Age: 28 Month
  Sex: Female
  Weight: 46 kg

DRUGS (6)
  1. SALBUTAMOL INHALATIONSSPRAY [Concomitant]
     Indication: BRONCHITIS
     Dosage: 2-2-2 HUB
     Route: 055
     Dates: start: 20200202, end: 20200203
  2. PARACETAMOL [Concomitant]
     Active Substance: ACETAMINOPHEN
     Indication: PYREXIA
     Dosage: 0-5-5-5ML,
     Route: 048
     Dates: start: 20200128, end: 20200203
  3. PARACETAMOL [Concomitant]
     Active Substance: ACETAMINOPHEN
     Indication: PAIN
  4. AMOXICILLIN 500MG/5ML [Suspect]
     Active Substance: AMOXICILLIN
     Indication: BRONCHITIS
     Dosage: 15 ML DAILY; 5-5-5-0 ML
     Route: 048
     Dates: start: 20200202, end: 20200202
  5. NUROFEN 40MG/ML [Concomitant]
     Indication: PYREXIA
     Dosage: 15 ML DAILY; 5-5-5ML
     Route: 048
     Dates: start: 20200128, end: 20200203
  6. NUROFEN 40MG/ML [Concomitant]
     Indication: PAIN

REACTIONS (2)
  - Fluid intake reduced [Recovered/Resolved]
  - Vomiting [Recovered/Resolved]

NARRATIVE: CASE EVENT DATE: 20200203
